FAERS Safety Report 11358847 (Version 1)
Quarter: 2015Q3

REPORT INFORMATION
  Report Type: Spontaneous
  Country: US (occurrence: None)
  Receive Date: 20150807
  Receipt Date: 20150807
  Transmission Date: 20151125
  Serious: Yes (Other)
  Sender: FDA-Public Use
  Company Number: None

PATIENT
  Age: 51 Year
  Sex: Male
  Weight: 95.26 kg

DRUGS (28)
  1. LISINOPRIL AND HYDROCHLOROTHIAZIDE [Concomitant]
     Active Substance: HYDROCHLOROTHIAZIDE\LISINOPRIL
  2. VALIUM [Concomitant]
     Active Substance: DIAZEPAM
  3. BEDSIDE COMMODE [Concomitant]
  4. BISACODYL. [Concomitant]
     Active Substance: BISACODYL
  5. OMPERIZOLE [Concomitant]
  6. PERCOCET [Concomitant]
     Active Substance: ACETAMINOPHEN\OXYCODONE HYDROCHLORIDE
  7. POSSIBLY CRUTCHES [Concomitant]
  8. MAGNESIUM [Concomitant]
     Active Substance: MAGNESIUM
  9. SEENA [Concomitant]
  10. FLEXERIL [Concomitant]
     Active Substance: CYCLOBENZAPRINE HYDROCHLORIDE
  11. GABAPENTIN. [Suspect]
     Active Substance: GABAPENTIN
     Indication: ACCIDENT
     Route: 048
     Dates: start: 20150804, end: 20150806
  12. MSSR [Concomitant]
  13. BOOT/SPLINT [Concomitant]
  14. WC [Concomitant]
  15. DHEA [Concomitant]
     Active Substance: PRASTERONE
  16. CALCIUM/VIT D [Concomitant]
  17. MULTI VITAMIN [Concomitant]
     Active Substance: VITAMINS
  18. GABAPENTIN. [Suspect]
     Active Substance: GABAPENTIN
     Indication: HYPOAESTHESIA
     Route: 048
     Dates: start: 20150804, end: 20150806
  19. INTERNAL FIXATIONS [Concomitant]
  20. HOSPITAL BED [Concomitant]
  21. BONE SUPPORT [Concomitant]
  22. SHOWER SEAT [Concomitant]
  23. LEG BRACES [Concomitant]
  24. ANTICIPATE ADVANCING TO WALKER [Concomitant]
  25. FENUGREEK [Concomitant]
  26. MELATONIN [Concomitant]
     Active Substance: MELATONIN
  27. COLACE [Concomitant]
     Active Substance: DOCUSATE SODIUM
  28. BENADRYL [Concomitant]
     Active Substance: DIPHENHYDRAMINE HYDROCHLORIDE

REACTIONS (6)
  - Peripheral vascular disorder [None]
  - Pain in extremity [None]
  - Insomnia [None]
  - Skin discolouration [None]
  - Eye pain [None]
  - Fatigue [None]

NARRATIVE: CASE EVENT DATE: 20150806
